FAERS Safety Report 24181002 (Version 1)
Quarter: 2024Q3

REPORT INFORMATION
  Report Type: Report from Study
  Country: US (occurrence: US)
  Receive Date: 20240806
  Receipt Date: 20240806
  Transmission Date: 20241017
  Serious: Yes (Hospitalization)
  Sender: MITSUBISHI TANABE PHARMA
  Company Number: US-MTPC-MTDA2024-0016261

PATIENT
  Sex: Female

DRUGS (2)
  1. RADICAVA ORS [Suspect]
     Active Substance: EDARAVONE
     Indication: Amyotrophic lateral sclerosis
     Dosage: 5 MILLILITER, QD FOR 10 OUT OF 14 DAYS THEN 14 DAYS OFF
     Route: 048
     Dates: start: 202406
  2. RADICAVA ORS [Suspect]
     Active Substance: EDARAVONE
     Indication: Amyotrophic lateral sclerosis
     Dosage: 5 MILLILITER, QD FOR 10 OUT OF 14 DAYS THEN 14 DAYS OFF
     Route: 048
     Dates: start: 202406

REACTIONS (6)
  - Dyspnoea [Unknown]
  - Palpitations [Unknown]
  - Burning sensation [Unknown]
  - Constipation [Unknown]
  - Presyncope [Unknown]
  - Disease progression [Unknown]
